FAERS Safety Report 19417970 (Version 1)
Quarter: 2021Q2

REPORT INFORMATION
  Report Type: Report from Study
  Country: US (occurrence: US)
  Receive Date: 20210615
  Receipt Date: 20210615
  Transmission Date: 20210717
  Serious: Yes (Hospitalization)
  Sender: FDA-Public Use
  Company Number: US-EISAI MEDICAL RESEARCH-EC-2021-094191

PATIENT
  Age: 85 Year
  Sex: Male

DRUGS (1)
  1. LENVIMA [Suspect]
     Active Substance: LENVATINIB
     Indication: HEPATIC CANCER
     Route: 048
     Dates: start: 20210525, end: 2021

REACTIONS (6)
  - Hypotension [Unknown]
  - Glossitis [Unknown]
  - Anal incontinence [Unknown]
  - Lethargy [Unknown]
  - Pneumonia [Unknown]
  - Confusional state [Unknown]

NARRATIVE: CASE EVENT DATE: 2021
